FAERS Safety Report 7476188-5 (Version None)
Quarter: 2011Q2

REPORT INFORMATION
  Report Type: 
  Country: None (occurrence: None)
  Receive Date: 20110512
  Receipt Date: 20110510
  Transmission Date: 20111010
  Serious: Yes (Hospitalization, Other)
  Sender: FDA-Public Use
  Company Number: JP-PFIZER INC-2011089966

PATIENT
  Age: 68 Year
  Sex: Female

DRUGS (2)
  1. FENTANYL [Concomitant]
     Indication: PAIN
     Dosage: UNK
  2. LYRICA [Suspect]
     Indication: PAIN
     Dosage: 150 MG DAILY
     Route: 048
     Dates: start: 20110401

REACTIONS (4)
  - MALIGNANT ASCITES [None]
  - SOMNOLENCE [None]
  - DISEASE PROGRESSION [None]
  - VISION BLURRED [None]
